FAERS Safety Report 4816563-8 (Version None)
Quarter: 2005Q4

REPORT INFORMATION
  Report Type: 
  Country: None (occurrence: None)
  Receive Date: 20051031
  Receipt Date: 20051031
  Transmission Date: 20060501
  Serious: Yes (Hospitalization)
  Sender: FDA-Public Use
  Company Number: None

PATIENT
  Age: 51 Year
  Sex: Female
  Weight: 63.8 kg

DRUGS (7)
  1. GLEEVEC [Suspect]
     Indication: URETERIC CANCER
     Dosage: 300 MG QD 21 /21D
     Dates: start: 20050823, end: 20050921
  2. XELODA [Suspect]
     Dosage: 1300 MG BID 14/21DA
     Dates: start: 20050823, end: 20050920
  3. OXYCONTIN [Concomitant]
  4. OCYCODONE [Concomitant]
  5. COUMADIN [Concomitant]
  6. MIRALAX [Concomitant]
  7. SENNA [Concomitant]

REACTIONS (5)
  - BACK PAIN [None]
  - CHEST PAIN [None]
  - MUSCULOSKELETAL CHEST PAIN [None]
  - NAUSEA [None]
  - PLEURAL EFFUSION [None]
